FAERS Safety Report 8167876-6 (Version None)
Quarter: 2012Q1

REPORT INFORMATION
  Report Type: 
  Country: None (occurrence: None)
  Receive Date: 20120222
  Receipt Date: 20120207
  Transmission Date: 20120608
  Serious: Yes (Other)
  Sender: FDA-Public Use
  Company Number: 2012P1002843

PATIENT
  Age: 50 Year
  Sex: Female
  Weight: 74.3899 kg

DRUGS (8)
  1. FENTANYL [Suspect]
     Indication: BACK PAIN
     Dosage: 1 PATCH;Q27H;TDER, 1 PATCH;Q27H;TDER
     Route: 062
     Dates: start: 20110601, end: 20120115
  2. FENTANYL [Suspect]
     Indication: BACK PAIN
     Dosage: 1 PATCH;Q27H;TDER, 1 PATCH;Q27H;TDER
     Route: 062
     Dates: start: 20120124
  3. CRESTOR [Concomitant]
  4. NEURONTIN [Concomitant]
  5. ROXICODONE [Concomitant]
  6. METFORMIN HCL [Concomitant]
  7. VALIUM [Concomitant]
  8. OMEPRAZOLE [Concomitant]

REACTIONS (11)
  - AMNESIA [None]
  - APPLICATION SITE SWELLING [None]
  - DYSPNOEA [None]
  - APPLICATION SITE PRURITUS [None]
  - DYSARTHRIA [None]
  - INCORRECT DOSE ADMINISTERED BY DEVICE [None]
  - APPLICATION SITE ERYTHEMA [None]
  - APPLICATION SITE EROSION [None]
  - SOMNOLENCE [None]
  - PRODUCT QUALITY ISSUE [None]
  - HYPERSOMNIA [None]
